FAERS Safety Report 17803730 (Version 2)
Quarter: 2020Q2

REPORT INFORMATION
  Report Type: Report from Study
  Country: None (occurrence: US)
  Receive Date: 20200519
  Receipt Date: 20200603
  Transmission Date: 20200714
  Serious: Yes (Hospitalization)
  Sender: FDA-Public Use
  Company Number: US-ABBVIE-20K-163-3408063-00

PATIENT
  Sex: Male
  Weight: 74.91 kg

DRUGS (3)
  1. SALT [Concomitant]
     Active Substance: SODIUM CHLORIDE
     Indication: ADDISON^S DISEASE
  2. RINVOQ [Suspect]
     Active Substance: UPADACITINIB
     Indication: RHEUMATOID ARTHRITIS
     Route: 048
     Dates: start: 202003, end: 202004
  3. PLAQUENIL [Concomitant]
     Active Substance: HYDROXYCHLOROQUINE SULFATE
     Indication: RHEUMATOID ARTHRITIS

REACTIONS (7)
  - Pain [Unknown]
  - Pharyngitis [Recovering/Resolving]
  - Dehydration [Recovering/Resolving]
  - Pneumonia [Recovered/Resolved]
  - Pulmonary thrombosis [Recovering/Resolving]
  - Joint stiffness [Not Recovered/Not Resolved]
  - Feeding disorder [Recovering/Resolving]

NARRATIVE: CASE EVENT DATE: 2020
